FAERS Safety Report 24810045 (Version 1)
Quarter: 2025Q1

REPORT INFORMATION
  Report Type: Spontaneous
  Country: US (occurrence: None)
  Receive Date: 20250103
  Receipt Date: 20250103
  Transmission Date: 20250408
  Serious: Yes (Hospitalization)
  Sender: FDA-CTU
  Company Number: None

PATIENT
  Age: 71 Year
  Sex: Female
  Weight: 56.25 kg

DRUGS (14)
  1. ITRACONAZOLE [Suspect]
     Active Substance: ITRACONAZOLE
     Indication: Antifungal treatment
     Dosage: OTHER QUANTITY : 2 CAPSULE(S);?FREQUENCY : TWICE A DAY;?
     Route: 048
     Dates: start: 20240917, end: 20241209
  2. Armour thyroid pill [Concomitant]
  3. Estradoil/ Progesterone and testosterone cream [Concomitant]
  4. PROGESTERONE [Concomitant]
     Active Substance: PROGESTERONE
  5. PRASTERONE [Concomitant]
     Active Substance: PRASTERONE
  6. PREGNENOLONE [Concomitant]
     Active Substance: PREGNENOLONE
  7. VITAMIN C [Concomitant]
     Active Substance: ASCORBIC ACID
  8. D [Concomitant]
  9. TOCOPHEROL [Concomitant]
     Active Substance: TOCOPHEROL
  10. ZINC [Concomitant]
     Active Substance: ZINC
  11. IODINE NOS [Concomitant]
     Active Substance: UNSPECIFIED INGREDIENT
  12. NAC capsule [Concomitant]
  13. Lipsomal Glutathione capsules [Concomitant]
  14. Megaspore probiotic [Concomitant]

REACTIONS (1)
  - Status epilepticus [None]
